FAERS Safety Report 25994030 (Version 1)
Quarter: 2025Q4

REPORT INFORMATION
  Report Type: Spontaneous
  Country: TR (occurrence: TR)
  Receive Date: 20251104
  Receipt Date: 20251104
  Transmission Date: 20260117
  Serious: Yes (Death)
  Sender: ROCHE
  Company Number: TR-ROCHE-10000419819

PATIENT
  Age: 5 Month
  Sex: Female

DRUGS (1)
  1. EVRYSDI [Suspect]
     Active Substance: RISDIPLAM
     Indication: Spinal muscular atrophy
     Route: 065

REACTIONS (5)
  - Cardio-respiratory arrest [Fatal]
  - Diarrhoea [Unknown]
  - C-reactive protein increased [Unknown]
  - Respiratory distress [Fatal]
  - Pneumonia [Fatal]
